FAERS Safety Report 22007125 (Version 2)
Quarter: 2023Q1

REPORT INFORMATION
  Report Type: Report from Study
  Country: US (occurrence: US)
  Receive Date: 20230217
  Receipt Date: 20230224
  Transmission Date: 20230417
  Serious: Yes (Life-Threatening, Other)
  Sender: FDA-Public Use
  Company Number: US-SEATTLE GENETICS-2023SGN00760

PATIENT
  Age: 72 Year
  Sex: Female

DRUGS (2)
  1. TUCATINIB [Suspect]
     Active Substance: TUCATINIB
     Indication: Breast cancer female
     Dosage: UNK
     Route: 065
  2. TUCATINIB [Suspect]
     Active Substance: TUCATINIB
     Dosage: UNK
     Route: 065

REACTIONS (15)
  - Adverse drug reaction [Unknown]
  - Malignant neoplasm progression [Unknown]
  - Hepatitis [Unknown]
  - Liver disorder [Unknown]
  - Ageusia [Unknown]
  - Oral discomfort [Unknown]
  - Hepatic function abnormal [Unknown]
  - Hepatic mass [Unknown]
  - Headache [Unknown]
  - Product dose omission issue [Unknown]
  - Fatigue [Unknown]
  - Liver function test increased [Unknown]
  - Decreased appetite [Unknown]
  - Rash [Unknown]
  - Nausea [Unknown]

NARRATIVE: CASE EVENT DATE: 20220118
